FAERS Safety Report 7285387-7 (Version None)
Quarter: 2011Q1

REPORT INFORMATION
  Report Type: 
  Country: None (occurrence: None)
  Receive Date: 20110210
  Receipt Date: 20110131
  Transmission Date: 20110831
  Serious: Yes (Death)
  Sender: FDA-Public Use
  Company Number: CHPA2011US02075

PATIENT
  Age: 54 Year
  Sex: Female

DRUGS (3)
  1. ETHANOL [Suspect]
     Route: 048
  2. ACETAMINOPHEN (PARACETAMOL),DIPHENHYDRAMINE HYDROCHLORIDE [Suspect]
     Route: 048
  3. ACETAMINOPHEN [Suspect]
     Route: 048

REACTIONS (1)
  - DEATH [None]
